FAERS Safety Report 11759927 (Version 2)
Quarter: 2016Q4

REPORT INFORMATION
  Report Type: Spontaneous
  Country: US (occurrence: US)
  Receive Date: 20151120
  Receipt Date: 20161004
  Transmission Date: 20170206
  Serious: No
  Sender: FDA-Public Use
  Company Number: US-JNJFOC-20151024291

PATIENT
  Age: 60 Year
  Sex: Female
  Weight: 41.73 kg

DRUGS (2)
  1. WOMENS ROGAINE [Suspect]
     Active Substance: MINOXIDIL
     Route: 061
  2. WOMENS ROGAINE [Suspect]
     Active Substance: MINOXIDIL
     Indication: ALOPECIA
     Dosage: SINCE 2006
     Route: 061
     Dates: start: 2006

REACTIONS (4)
  - Drug administered at inappropriate site [Unknown]
  - Alopecia [Not Recovered/Not Resolved]
  - Product use issue [Not Recovered/Not Resolved]
  - Intentional product misuse [Not Recovered/Not Resolved]
